FAERS Safety Report 7556470-3 (Version None)
Quarter: 2011Q2

REPORT INFORMATION
  Report Type: 
  Country: None (occurrence: None)
  Receive Date: 20110610
  Receipt Date: 20110526
  Transmission Date: 20111010
  Serious: Yes (Hospitalization)
  Sender: FDA-Public Use
  Company Number: DSM-2011-00195

PATIENT
  Age: 64 Year
  Sex: Male

DRUGS (9)
  1. AMLODIPINE BESYLATE AND OLMESARTAN MEDOXOMIL [Suspect]
     Indication: PRODUCT USED FOR UNKNOWN INDICATION
     Dosage: 40/10 MG (1 IN 1 D), ORAL 20/5 MG (1 IN 1 D) ORAL
     Route: 048
     Dates: start: 20110121
  2. AMLODIPINE BESYLATE AND OLMESARTAN MEDOXOMIL [Suspect]
     Indication: PRODUCT USED FOR UNKNOWN INDICATION
     Dosage: 40/10 MG (1 IN 1 D), ORAL 20/5 MG (1 IN 1 D) ORAL
     Route: 048
     Dates: start: 20101001, end: 20110120
  3. KARDEGIC (ACETYLSALICYLATE LYSINE) (75 MILLIGRAM) (ACETYLSALICYLATE LY [Concomitant]
  4. EUCREAS (METFORMIN HYDROCHLORIDE, VILDAGLIPTIN) (METFORMIN HYDROCHLORI [Concomitant]
  5. TEMERIT (NEBIVOLOL) (5 MILLIGRAM) (NEBIVOLOL) [Concomitant]
  6. PLAVIX [Concomitant]
  7. LASILIX (FUROSEMIDE) (40 MILLIGRAM) (FUROSEMIDE) [Concomitant]
  8. NEURONTIN (GABAPENTIN) (800 MILLIGRAM) (GABAPENTIN) [Concomitant]
  9. THYMOPHEROL (ASCORBIC ACID, FERROUS SULFATE) (ASCORBIC ACID, FERROUS S [Concomitant]

REACTIONS (2)
  - ECZEMA [None]
  - PRURITUS [None]
